FAERS Safety Report 8068435-6 (Version None)
Quarter: 2012Q1

REPORT INFORMATION
  Report Type: 
  Country: None (occurrence: None)
  Receive Date: 20120124
  Receipt Date: 20111026
  Transmission Date: 20120608
  Serious: No
  Sender: FDA-Public Use
  Company Number: US-AMGEN-USASP2011055519

PATIENT
  Age: 69 Year

DRUGS (2)
  1. CALCIUM WITH VITAMIN D             /00944201/ [Concomitant]
  2. PROLIA [Suspect]
     Indication: OSTEOPOROSIS POSTMENOPAUSAL
     Dosage: 60 MG, UNK
     Dates: start: 20100201

REACTIONS (3)
  - PETECHIAE [None]
  - RASH MACULO-PAPULAR [None]
  - PRURITUS [None]
